FAERS Safety Report 10239879 (Version 1)
Quarter: 2014Q2

REPORT INFORMATION
  Report Type: Report from Study
  Country: LB (occurrence: LB)
  Receive Date: 20140616
  Receipt Date: 20140616
  Transmission Date: 20141212
  Serious: Yes (Hospitalization)
  Sender: FDA-Public Use
  Company Number: LB-ABBVIE-14P-093-1245152-00

PATIENT
  Age: 50 Year
  Sex: Male
  Weight: 66 kg

DRUGS (2)
  1. HUMIRA [Suspect]
     Indication: CROHN^S DISEASE
     Dosage: LOADING DOSE OF 160/80 MG
     Route: 058
     Dates: start: 20140429
  2. HUMIRA [Suspect]
     Route: 058
     Dates: start: 20140604

REACTIONS (3)
  - Fatigue [Unknown]
  - Asthenia [Unknown]
  - Pyrexia [Unknown]
